FAERS Safety Report 23512358 (Version 1)
Quarter: 2024Q1

REPORT INFORMATION
  Report Type: Spontaneous
  Country: AU (occurrence: AU)
  Receive Date: 20240212
  Receipt Date: 20240212
  Transmission Date: 20240410
  Serious: Yes (Hospitalization, Other)
  Sender: FDA-Public Use
  Company Number: AU-BAYER-2024A007036

PATIENT
  Age: 26 Year
  Sex: Female
  Weight: 103 kg

DRUGS (2)
  1. GADOBUTROL [Suspect]
     Active Substance: GADOBUTROL
     Indication: Magnetic resonance imaging heart
     Dosage: 20 ML, ONCE
     Route: 042
     Dates: start: 20240110, end: 20240110
  2. VENTOLIN [Concomitant]
     Active Substance: ALBUTEROL SULFATE
     Indication: Asthma
     Dosage: UNK

REACTIONS (5)
  - Hypersensitivity [Unknown]
  - Urticaria [Unknown]
  - Pruritus [None]
  - Chest discomfort [None]
  - Throat tightness [None]

NARRATIVE: CASE EVENT DATE: 20240110
